FAERS Safety Report 7359289-1 (Version None)
Quarter: 2011Q1

REPORT INFORMATION
  Report Type: 
  Country: None (occurrence: None)
  Receive Date: 20110317
  Receipt Date: 20090829
  Transmission Date: 20110831
  Serious: No
  Sender: FDA-Public Use
  Company Number: US-PFIZER INC-2009261665

PATIENT
  Sex: Female

DRUGS (2)
  1. NORVASC [Suspect]
     Dosage: UNK
  2. ACCUPRIL [Suspect]
     Dosage: UNK

REACTIONS (2)
  - DIZZINESS [None]
  - DISORIENTATION [None]
